FAERS Safety Report 5052652-3 (Version None)
Quarter: 2006Q3

REPORT INFORMATION
  Report Type: 
  Country: None (occurrence: None)
  Receive Date: 20060712
  Receipt Date: 20060712
  Transmission Date: 20061208
  Serious: Yes (Other)
  Sender: FDA-Public Use
  Company Number: None

PATIENT
  Age: 85 Year
  Sex: Male
  Weight: 80.7 kg

DRUGS (5)
  1. ACETAMINOPHEN AND HYDROCODONE BITARTRATE [Suspect]
  2. ETODOLAC [Concomitant]
  3. BICALUTAMIDE [Concomitant]
  4. LUBRICATING (PF) OPH OINT [Concomitant]
  5. HYPROMELLOSE [Concomitant]

REACTIONS (2)
  - NAUSEA [None]
  - VOMITING [None]
